FAERS Safety Report 4872485-8 (Version None)
Quarter: 2006Q1

REPORT INFORMATION
  Report Type: 
  Country: None (occurrence: None)
  Receive Date: 20060104
  Receipt Date: 20051006
  Transmission Date: 20060701
  Serious: Yes (Death)
  Sender: FDA-Public Use
  Company Number: US-SANOFI-SYNTHELABO-A03200503200

PATIENT
  Sex: Female

DRUGS (6)
  1. PLAVIX [Suspect]
     Indication: CORONARY ARTERY DISEASE
     Route: 048
     Dates: start: 20050601, end: 20050701
  2. PRAVACHOL [Suspect]
     Indication: HYPERCHOLESTEROLAEMIA
     Route: 048
     Dates: start: 20050601, end: 20050623
  3. LASIX [Concomitant]
     Dosage: UNK
     Route: 065
  4. ZOLOFT [Concomitant]
     Dosage: UNK
     Route: 048
  5. LORTAB [Concomitant]
     Dosage: UNK
     Route: 065
  6. DIAZEPAM [Concomitant]
     Dosage: UNK
     Route: 065

REACTIONS (1)
  - DEATH [None]
